FAERS Safety Report 7911452-4 (Version None)
Quarter: 2011Q4

REPORT INFORMATION
  Report Type: 
  Country: None (occurrence: None)
  Receive Date: 20111108
  Receipt Date: 20111011
  Transmission Date: 20120403
  Serious: No
  Sender: FDA-Public Use
  Company Number: 2011PP000052

PATIENT
  Age: 62 Year
  Sex: Female

DRUGS (4)
  1. RID MOUSSE [Concomitant]
  2. LICEMD [Concomitant]
  3. NATROBA [Suspect]
     Dosage: ;X1;TOPICAL, X1;TOPICAL
     Route: 061
     Dates: start: 20111010, end: 20111010
  4. NATROBA [Suspect]
     Dosage: ;X1;TOPICAL, X1;TOPICAL
     Route: 061
     Dates: start: 20111004, end: 20111004

REACTIONS (1)
  - DRUG INEFFECTIVE [None]
